FAERS Safety Report 8829271 (Version 2)
Quarter: 2012Q4

REPORT INFORMATION
  Report Type: 
  Country: US (occurrence: US)
  Receive Date: 20121008
  Receipt Date: 20121019
  Transmission Date: 20130627
  Serious: No
  Sender: FDA-Public Use
  Company Number: US-ASTRAZENECA-2012SE73908

PATIENT
  Sex: Female

DRUGS (6)
  1. SYMBICORT PMDI [Suspect]
     Indication: ASTHMA
     Dosage: 160/4.5 MCG, TWO TIMES A DAY
     Route: 055
  2. ADVAIR [Concomitant]
  3. FLOVENT [Concomitant]
  4. NASONEX [Concomitant]
  5. SINGULAIR [Concomitant]
  6. XOLAIR [Concomitant]

REACTIONS (5)
  - Asthma [Unknown]
  - Asthma [Unknown]
  - Activities of daily living impaired [Unknown]
  - Sleep disorder due to general medical condition, insomnia type [Unknown]
  - Intentional drug misuse [Unknown]
